FAERS Safety Report 23939474 (Version 8)
Quarter: 2024Q4

REPORT INFORMATION
  Report Type: Report from Study
  Country: CA (occurrence: CA)
  Receive Date: 20240605
  Receipt Date: 20241018
  Transmission Date: 20250115
  Serious: Yes (Other)
  Sender: TAKEDA
  Company Number: CA-TAKEDA-2024TUS054845

PATIENT
  Age: 82 Year
  Sex: Female

DRUGS (8)
  1. VEDOLIZUMAB [Suspect]
     Active Substance: VEDOLIZUMAB
     Indication: Colitis ulcerative
     Dosage: 300 MILLIGRAM
     Route: 042
     Dates: start: 20240528
  2. VEDOLIZUMAB [Suspect]
     Active Substance: VEDOLIZUMAB
     Dosage: 300 MILLIGRAM
     Route: 042
  3. VEDOLIZUMAB [Suspect]
     Active Substance: VEDOLIZUMAB
     Dosage: 300 MILLIGRAM
     Route: 042
  4. PREDNISONE [Concomitant]
     Active Substance: PREDNISONE
     Dosage: UNK
     Dates: start: 20240423
  5. CALCIUM [Concomitant]
     Active Substance: CALCIUM
     Dosage: UNK
  6. VITAMIN D NOS [Concomitant]
     Active Substance: CHOLECALCIFEROL\ERGOCALCIFEROL
     Dosage: UNK
  7. VENLAFAXINE [Concomitant]
     Active Substance: VENLAFAXINE HYDROCHLORIDE
     Dosage: UNK
  8. ATIVAN [Concomitant]
     Active Substance: LORAZEPAM
     Dosage: UNK

REACTIONS (13)
  - Haematochezia [Recovered/Resolved]
  - Colitis ulcerative [Unknown]
  - Defaecation urgency [Recovered/Resolved]
  - Therapeutic reaction time decreased [Unknown]
  - Nervousness [Unknown]
  - Blood pressure decreased [Unknown]
  - Diarrhoea [Recovered/Resolved]
  - Mucous stools [Recovered/Resolved]
  - Stress [Recovered/Resolved]
  - Faecal volume decreased [Recovered/Resolved]
  - Abdominal pain [Recovered/Resolved]
  - Dyspepsia [Unknown]
  - Nasopharyngitis [Not Recovered/Not Resolved]

NARRATIVE: CASE EVENT DATE: 20240912
